FAERS Safety Report 5310467-2 (Version None)
Quarter: 2007Q2

REPORT INFORMATION
  Report Type: 
  Country: None (occurrence: None)
  Receive Date: 20070427
  Receipt Date: 20070419
  Transmission Date: 20071010
  Serious: Yes (Other)
  Sender: FDA-Public Use
  Company Number: GB-JNJFOC-20070404345

PATIENT
  Sex: Female
  Weight: 46 kg

DRUGS (5)
  1. REMICADE [Suspect]
     Indication: DRUG USE FOR UNKNOWN INDICATION
  2. METHOTREXATE [Concomitant]
  3. PREDNISONE TAB [Concomitant]
  4. RISEDRONATE SODIUM [Concomitant]
  5. ADSOL [Concomitant]

REACTIONS (1)
  - RENAL CELL CARCINOMA STAGE UNSPECIFIED [None]
